FAERS Safety Report 7792789-9 (Version None)
Quarter: 2011Q4

REPORT INFORMATION
  Report Type: 
  Country: None (occurrence: None)
  Receive Date: 20111003
  Receipt Date: 20100118
  Transmission Date: 20120403
  Serious: Yes (Hospitalization)
  Sender: FDA-Public Use
  Company Number: US-GLAXOSMITHKLINE-A0840369A

PATIENT
  Age: 69 Year
  Sex: Male

DRUGS (11)
  1. LISINOPRIL [Concomitant]
  2. NEURONTIN [Concomitant]
  3. ZOLOFT [Concomitant]
  4. SIMVASTATIN [Concomitant]
  5. REZULIN [Concomitant]
     Dates: end: 20000329
  6. PREVACID [Concomitant]
  7. INSULIN [Concomitant]
  8. AVANDIA [Suspect]
     Indication: DIABETES MELLITUS
     Dosage: 4MG TWICE PER DAY
     Route: 048
     Dates: start: 20000406, end: 20001012
  9. TRIAMTERENE AND HYDROCHLOROTHIAZIDE [Concomitant]
  10. PLENDIL [Concomitant]
  11. METFORMIN HCL [Concomitant]

REACTIONS (2)
  - CARDIAC FAILURE CONGESTIVE [None]
  - MYOCARDIAL ISCHAEMIA [None]
